FAERS Safety Report 5252493-8 (Version None)
Quarter: 2007Q1

REPORT INFORMATION
  Report Type: 
  Country: None (occurrence: None)
  Receive Date: 20070301
  Receipt Date: 20070131
  Transmission Date: 20070707
  Serious: Yes (Life-Threatening, Hospitalization, Other)
  Sender: FDA-Public Use
  Company Number: US-BRISTOL-MYERS SQUIBB COMPANY-13617188

PATIENT
  Age: 70 Year
  Sex: Male

DRUGS (2)
  1. ERBITUX [Suspect]
     Indication: COLORECTAL CANCER METASTATIC
     Route: 042
     Dates: start: 20061201, end: 20061213
  2. BENADRYL [Concomitant]
     Indication: PREMEDICATION
     Route: 042

REACTIONS (2)
  - ANAPHYLACTIC REACTION [None]
  - PRURITUS [None]
